FAERS Safety Report 18440144 (Version 1)
Quarter: 2020Q4

REPORT INFORMATION
  Report Type: Spontaneous
  Country: ES (occurrence: ES)
  Receive Date: 20201029
  Receipt Date: 20201029
  Transmission Date: 20210114
  Serious: Yes (Hospitalization, Other)
  Sender: FDA-Public Use
  Company Number: ES-ACCORD-206551

PATIENT
  Age: 47 Year
  Sex: Male

DRUGS (7)
  1. CEFTRIAXONE. [Suspect]
     Active Substance: CEFTRIAXONE
     Indication: COVID-19 PNEUMONIA
  2. TOCILIZUMAB. [Suspect]
     Active Substance: TOCILIZUMAB
     Indication: COVID-19 PNEUMONIA
  3. LOPINAVIR/RITONAVIR [Suspect]
     Active Substance: LOPINAVIR\RITONAVIR
     Indication: COVID-19 PNEUMONIA
  4. AZITHROMYCIN ANHYDROUS. [Suspect]
     Active Substance: AZITHROMYCIN ANHYDROUS
     Indication: COVID-19 PNEUMONIA
  5. INTERFERON BETA NOS [Suspect]
     Active Substance: INTERFERON BETA
     Indication: COVID-19 PNEUMONIA
  6. DEXTROMETHORPHAN [Suspect]
     Active Substance: DEXTROMETHORPHAN
     Indication: COVID-19 PNEUMONIA
  7. HYDROXYCHLOROQUINE [Suspect]
     Active Substance: HYDROXYCHLOROQUINE
     Indication: COVID-19 PNEUMONIA

REACTIONS (4)
  - Rash maculo-papular [Recovering/Resolving]
  - Pruritus [Recovering/Resolving]
  - Eosinophilia [Recovering/Resolving]
  - Off label use [Unknown]
